FAERS Safety Report 23907561 (Version 1)
Quarter: 2024Q2

REPORT INFORMATION
  Report Type: Spontaneous
  Country: US (occurrence: US)
  Receive Date: 20240528
  Receipt Date: 20240528
  Transmission Date: 20240716
  Serious: Yes (Other)
  Sender: FDA-Public Use
  Company Number: US-BRISTOL-MYERS SQUIBB COMPANY-2024-078030

PATIENT
  Age: 66 Year
  Sex: Female

DRUGS (1)
  1. LENALIDOMIDE [Suspect]
     Active Substance: LENALIDOMIDE
     Indication: Plasma cell myeloma
     Dosage: TAKE 1 CAPSULE (5MG TOTAL) BY MOUTH EVERY DAY FOR 2 WEEKS ON AND 1 WEEK OFF
     Route: 048

REACTIONS (10)
  - Rash [Not Recovered/Not Resolved]
  - Fatigue [Not Recovered/Not Resolved]
  - Constipation [Unknown]
  - Brain injury [Unknown]
  - Sleep disorder [Unknown]
  - Off label use [Unknown]
  - Decreased appetite [Unknown]
  - Disturbance in attention [Unknown]
  - Slow speech [Unknown]
  - Mental impairment [Unknown]
